FAERS Safety Report 6556753-X (Version None)
Quarter: 2010Q1

REPORT INFORMATION
  Report Type: 
  Country: None (occurrence: None)
  Receive Date: 20100128
  Receipt Date: 20100121
  Transmission Date: 20100710
  Serious: Yes (Hospitalization)
  Sender: FDA-Public Use
  Company Number: DE-WYE-G05392710

PATIENT
  Age: 53 Year
  Sex: Male

DRUGS (7)
  1. TREVILOR [Interacting]
     Indication: DEPRESSION
     Dosage: 300 - 375 MG PER DAY
     Route: 048
     Dates: start: 20070917, end: 20071019
  2. ABILIFY [Suspect]
     Dosage: 15 - 30 MG PER DAY
     Route: 048
     Dates: start: 20070918, end: 20070927
  3. PANTOPRAZOLE [Concomitant]
     Route: 048
     Dates: start: 20070815, end: 20071016
  4. LEVOTHYROXINE SODIUM [Concomitant]
     Route: 048
     Dates: start: 20070601, end: 20071019
  5. LACTULOSE [Concomitant]
     Route: 048
     Dates: start: 20070913, end: 20071019
  6. QUILONUM - SLOW RELEASE [Interacting]
     Route: 048
     Dates: start: 20070816, end: 20071019
  7. TAVOR [Concomitant]
     Dosage: 3 - 0.5 MG PER DAY
     Route: 048
     Dates: start: 20070815, end: 20071011

REACTIONS (3)
  - DRUG INTERACTION [None]
  - DYSKINESIA [None]
  - PARAESTHESIA ORAL [None]
